FAERS Safety Report 14562137 (Version 1)
Quarter: 2018Q1

REPORT INFORMATION
  Report Type: Spontaneous
  Country: US (occurrence: US)
  Receive Date: 20180222
  Receipt Date: 20180222
  Transmission Date: 20180509
  Serious: Yes (Life-Threatening, Hospitalization, Disabling, Other)
  Sender: FDA-Public Use
  Company Number: None

PATIENT
  Age: 51 Year
  Sex: Female
  Weight: 97.52 kg

DRUGS (13)
  1. SUSTIVA [Concomitant]
     Active Substance: EFAVIRENZ
  2. TRUVADA (EMTRICITABINE AND TENOFOVIR DISOPROXIL FUMARATE) [Concomitant]
  3. LEVEMIR FLEX TOUCH (INSULIN DETEMIR) [Concomitant]
  4. DESCOVY [Suspect]
     Active Substance: EMTRICITABINE\TENOFOVIR ALAFENAMIDE FUMARATE
     Indication: HIV INFECTION
     Dosage: 200-25 MG TABLET 1 TABLET DAILY BY MOUTH
     Route: 048
     Dates: start: 20170710, end: 20171115
  5. MIRALAX [Concomitant]
     Active Substance: POLYETHYLENE GLYCOL 3350
  6. AFEDITAB [Concomitant]
  7. ALBUTEROL SULFATE. [Concomitant]
     Active Substance: ALBUTEROL SULFATE
  8. CLOPIDOGREL [Concomitant]
     Active Substance: CLOPIDOGREL BISULFATE
  9. HYDROCHLOROTHIAZIDE. [Concomitant]
     Active Substance: HYDROCHLOROTHIAZIDE
  10. TIVICAY [Suspect]
     Active Substance: DOLUTEGRAVIR SODIUM
  11. HUMALOG [Concomitant]
     Active Substance: INSULIN LISPRO
  12. FAMOTIDINE. [Concomitant]
     Active Substance: FAMOTIDINE
  13. VITAMIN D2 [Concomitant]
     Active Substance: ERGOCALCIFEROL

REACTIONS (11)
  - Vision blurred [None]
  - Cough [None]
  - Gingival bleeding [None]
  - Heart rate increased [None]
  - Disorientation [None]
  - Blood glucose increased [None]
  - Gingival recession [None]
  - Feeling abnormal [None]
  - Pruritus [None]
  - Asthenia [None]
  - Thirst [None]

NARRATIVE: CASE EVENT DATE: 20171115
